FAERS Safety Report 19106531 (Version 1)
Quarter: 2021Q2

REPORT INFORMATION
  Report Type: Spontaneous
  Country: US (occurrence: US)
  Receive Date: 20210408
  Receipt Date: 20210408
  Transmission Date: 20210717
  Serious: No
  Sender: FDA-Public Use
  Company Number: US-SA-2021SA115341

PATIENT
  Age: 56 Year
  Sex: Male

DRUGS (8)
  1. HALOBETASOL [Concomitant]
     Active Substance: HALOBETASOL PROPIONATE
  2. MYRBETRIQ [Concomitant]
     Active Substance: MIRABEGRON
  3. DUPIXENT [Suspect]
     Active Substance: DUPILUMAB
     Indication: DERMATITIS ATOPIC
     Dosage: 300 MG, QOW
     Route: 058
     Dates: start: 20190118
  4. NICOTINE. [Concomitant]
     Active Substance: NICOTINE
  5. ZOLPIDEM [Concomitant]
     Active Substance: ZOLPIDEM TARTRATE
  6. DUPIXENT [Suspect]
     Active Substance: DUPILUMAB
     Dosage: 300MG
  7. BUPROPION. [Concomitant]
     Active Substance: BUPROPION
     Dosage: 50 MG
  8. FEROSUL [Concomitant]
     Active Substance: FERROUS SULFATE

REACTIONS (3)
  - Lacrimation increased [Unknown]
  - Rash [Unknown]
  - Product use issue [Unknown]

NARRATIVE: CASE EVENT DATE: 202103
